FAERS Safety Report 7227663-X (Version None)
Quarter: 2011Q1

REPORT INFORMATION
  Report Type: 
  Country: None (occurrence: None)
  Receive Date: 20110114
  Receipt Date: 20110105
  Transmission Date: 20110831
  Serious: No
  Sender: FDA-Public Use
  Company Number: US-PFIZER INC-2011003923

PATIENT
  Age: 6 Year
  Sex: Male

DRUGS (1)
  1. ALAVERT [Suspect]
     Dosage: 1/2 IN THE MORNING AND 1/2 AT NIGHT
     Route: 048
     Dates: start: 20101201

REACTIONS (2)
  - DRUG INEFFECTIVE [None]
  - WHEEZING [None]
